FAERS Safety Report 12999199 (Version 1)
Quarter: 2016Q4

REPORT INFORMATION
  Report Type: Spontaneous
  Country: US (occurrence: US)
  Receive Date: 20161205
  Receipt Date: 20161205
  Transmission Date: 20170207
  Serious: No
  Sender: FDA-Public Use
  Company Number: US-GLAXOSMITHKLINE-US2016178314

PATIENT
  Age: 35 Year
  Sex: Female

DRUGS (1)
  1. VOLTAREN [Suspect]
     Active Substance: DICLOFENAC SODIUM
     Indication: PAIN IN EXTREMITY
     Dosage: UNK UNK, BID
     Dates: start: 20161126

REACTIONS (6)
  - Prescription drug used without a prescription [Unknown]
  - Pain [Recovered/Resolved]
  - Headache [Unknown]
  - Feeling cold [Recovered/Resolved]
  - Product use issue [Unknown]
  - Expired product administered [Unknown]

NARRATIVE: CASE EVENT DATE: 20161127
